FAERS Safety Report 16687382 (Version 1)
Quarter: 2019Q3

REPORT INFORMATION
  Report Type: Spontaneous
  Country: US (occurrence: US)
  Receive Date: 20190809
  Receipt Date: 20190809
  Transmission Date: 20191004
  Serious: No
  Sender: FDA-Public Use
  Company Number: US-TARO-2018TAR00722

PATIENT
  Age: 70 Year
  Sex: Female

DRUGS (8)
  1. PREDNISONE. [Suspect]
     Active Substance: PREDNISONE
     Indication: FUNGAL INFECTION
     Dosage: UNK
     Dates: start: 201806, end: 2018
  2. LOVASTATIN. [Concomitant]
     Active Substance: LOVASTATIN
     Dosage: 10 MG, 1X/DAY
     Route: 048
  3. UNSPECIFIED PILL FOR YEAST INFECTION [Suspect]
     Active Substance: UNSPECIFIED INGREDIENT
     Indication: FUNGAL INFECTION
     Dosage: UNK
     Dates: start: 201806, end: 2018
  4. UNSPECIFIED ANTIBIOTIC [Suspect]
     Active Substance: UNSPECIFIED INGREDIENT
     Indication: FUNGAL INFECTION
     Dosage: UNK
     Dates: start: 201806, end: 2018
  5. LEVOTHYROXINE. [Concomitant]
     Active Substance: LEVOTHYROXINE
     Dosage: 25 ?G, 1X/DAY
     Route: 048
  6. WARFARIN SODIUM TABLETS USP 5MG [Suspect]
     Active Substance: WARFARIN SODIUM
     Indication: TRANSIENT ISCHAEMIC ATTACK
     Dosage: 5 MG, 6X/WEEK
     Route: 048
     Dates: end: 2018
  7. WARFARIN SODIUM TABLETS USP 5MG [Suspect]
     Active Substance: WARFARIN SODIUM
     Dosage: 2.5 MG, 1X/WEEK
     Route: 048
     Dates: end: 2018
  8. UNSPECIFIED OTHER BLOOD PRESSURE MEDICATIONS [Concomitant]
     Dosage: UNK, 1X/DAY
     Route: 048

REACTIONS (3)
  - Fungal infection [Recovered/Resolved]
  - Product quality issue [Unknown]
  - International normalised ratio abnormal [Recovered/Resolved]

NARRATIVE: CASE EVENT DATE: 201806
